FAERS Safety Report 19782692 (Version 1)
Quarter: 2021Q3

REPORT INFORMATION
  Report Type: Spontaneous
  Country: US (occurrence: US)
  Receive Date: 20210902
  Receipt Date: 20210902
  Transmission Date: 20211014
  Serious: No
  Sender: FDA-Public Use
  Company Number: US-ENDO PHARMACEUTICALS INC-2021-001672

PATIENT
  Sex: Female
  Weight: 58.97 kg

DRUGS (3)
  1. COVID?19 VACCINE [Concomitant]
     Indication: COVID-19 IMMUNISATION
  2. PREDNISONE. [Suspect]
     Active Substance: PREDNISONE
     Indication: HYPOAESTHESIA
  3. PREDNISONE. [Suspect]
     Active Substance: PREDNISONE
     Indication: SWELLING FACE
     Dosage: UNK UNKNOWN, UNKNOWN
     Route: 065
     Dates: start: 20210226

REACTIONS (2)
  - Hypoaesthesia [Unknown]
  - Swelling face [Unknown]
